FAERS Safety Report 7670845-3 (Version None)
Quarter: 2011Q3

REPORT INFORMATION
  Report Type: 
  Country: None (occurrence: None)
  Receive Date: 20110805
  Receipt Date: 20110805
  Transmission Date: 20111222
  Serious: Yes (Hospitalization)
  Sender: FDA-Public Use
  Company Number: None

PATIENT
  Age: 71 Year
  Sex: Male
  Weight: 97.3 kg

DRUGS (2)
  1. WARFARIN SODIUM [Suspect]
     Indication: TRANSIENT ISCHAEMIC ATTACK
     Dosage: 7.5 MG EVERY DAY PO
     Route: 048
     Dates: start: 20110729
  2. WARFARIN SODIUM [Suspect]
     Dosage: MG EVERY DAY PO
     Route: 048

REACTIONS (3)
  - SUBDURAL HAEMATOMA [None]
  - FALL [None]
  - HAEMORRHAGE [None]
